FAERS Safety Report 8143267-9 (Version None)
Quarter: 2012Q1

REPORT INFORMATION
  Report Type: 
  Country: None (occurrence: None)
  Receive Date: 20120217
  Receipt Date: 20120213
  Transmission Date: 20120608
  Serious: Yes (Death, Other)
  Sender: FDA-Public Use
  Company Number: US-PFIZER INC-2012038592

PATIENT
  Sex: Female

DRUGS (1)
  1. REVATIO [Suspect]
     Indication: ATRIAL FIBRILLATION
     Dosage: 1 TABLET, 3X/DAY

REACTIONS (1)
  - DEATH [None]
